FAERS Safety Report 8165852-0 (Version None)
Quarter: 2012Q1

REPORT INFORMATION
  Report Type: 
  Country: None (occurrence: None)
  Receive Date: 20120227
  Receipt Date: 20111013
  Transmission Date: 20120608
  Serious: No
  Sender: FDA-Public Use
  Company Number: US-MYLANLABS-2011S1021510

PATIENT
  Sex: Female

DRUGS (4)
  1. CLARAVIS [Suspect]
     Indication: ACNE
     Dates: start: 20050101, end: 20050401
  2. ACCUTANE [Suspect]
     Indication: ACNE
     Dates: start: 20001001, end: 20010301
  3. AMNESTEEM [Suspect]
     Indication: ACNE
     Dates: start: 20050101, end: 20050401
  4. SOTRET [Suspect]
     Indication: ACNE
     Dates: start: 20050101, end: 20050401

REACTIONS (1)
  - IRRITABLE BOWEL SYNDROME [None]
